FAERS Safety Report 7635349-2 (Version None)
Quarter: 2011Q3

REPORT INFORMATION
  Report Type: 
  Country: None (occurrence: None)
  Receive Date: 20110726
  Receipt Date: 20110720
  Transmission Date: 20111222
  Serious: Yes (Hospitalization)
  Sender: FDA-Public Use
  Company Number: US-SANOFI-AVENTIS-2011SA038769

PATIENT
  Age: 72 Year
  Sex: Female
  Weight: 78 kg

DRUGS (25)
  1. SYNTHROID [Concomitant]
  2. ADVAIR DISKUS 100/50 [Concomitant]
     Indication: RESPIRATORY DISORDER
     Dosage: 250/50 2 TIMES A DAY
  3. OXYGEN [Concomitant]
     Dosage: 0.2 24/7
  4. LANTUS [Suspect]
     Dosage: DOSE:20 UNIT(S)
     Route: 058
     Dates: start: 20070101
  5. ISOSORBIDE DINITRATE [Concomitant]
  6. VICODIN [Concomitant]
     Indication: PAIN
     Dosage: 2 FOR PAIN AS NEEDED
  7. LUTEIN [Concomitant]
  8. ASPIRIN [Concomitant]
  9. ALL OTHER THERAPEUTIC PRODUCTS [Concomitant]
  10. XOPENEX [Concomitant]
     Dosage: 2 PUFFS DAILY
  11. SOLOSTAR [Suspect]
     Dates: start: 20070101
  12. FISH OIL [Concomitant]
     Dosage: 2 DAILY
  13. VITAMIN B-12 [Concomitant]
  14. REMICADE [Concomitant]
     Dosage: EVERY OTHER MONTH
  15. MICROZIDE [Concomitant]
  16. NITROGLYCERIN [Concomitant]
     Dosage: 0.4 1 EVERY 5 MIN, 3 TIMES FOR ONSET OF CHEST PAIN
  17. NEURONTIN [Concomitant]
     Dosage: 1-3 TIMES PER DAY
  18. AMLODIPINE [Concomitant]
  19. GLUCOPHAGE [Concomitant]
  20. EFFEXOR [Concomitant]
  21. ALBUTEROL [Concomitant]
  22. ATIVAN [Concomitant]
     Indication: NERVOUSNESS
  23. PRILOSEC [Concomitant]
  24. TIOTROPIUM BROMIDE [Concomitant]
     Indication: RESPIRATORY DISORDER
  25. VENTOLIN [Concomitant]
     Dosage: 2 PUFFS DAILY

REACTIONS (3)
  - UNEVALUABLE EVENT [None]
  - VISUAL IMPAIRMENT [None]
  - VISION BLURRED [None]
